FAERS Safety Report 10899045 (Version 2)
Quarter: 2015Q1

REPORT INFORMATION
  Report Type: Report from Study
  Country: US (occurrence: US)
  Receive Date: 20150309
  Receipt Date: 20150310
  Transmission Date: 20150721
  Serious: Yes (Other)
  Sender: FDA-Public Use
  Company Number: US-ABBVIE-15K-163-1354251-00

PATIENT
  Age: 57 Year
  Sex: Male
  Weight: 106.69 kg

DRUGS (9)
  1. TRAMADOL [Concomitant]
     Active Substance: TRAMADOL
     Indication: PAIN
  2. DESONIDE. [Concomitant]
     Active Substance: DESONIDE
     Indication: PSORIASIS
     Dosage: IN EAR
  3. METHOTREXATE [Concomitant]
     Active Substance: METHOTREXATE
     Indication: PSORIATIC ARTHROPATHY
     Dates: end: 201502
  4. HUMIRA [Suspect]
     Active Substance: ADALIMUMAB
     Route: 065
     Dates: start: 20150222
  5. FOLIC ACID. [Concomitant]
     Active Substance: FOLIC ACID
     Indication: PRODUCT USED FOR UNKNOWN INDICATION
  6. HUMIRA [Suspect]
     Active Substance: ADALIMUMAB
     Indication: PSORIATIC ARTHROPATHY
     Route: 065
     Dates: start: 201410, end: 20150201
  7. METHOTREXATE [Concomitant]
     Active Substance: METHOTREXATE
     Dates: start: 201502
  8. HUMIRA [Suspect]
     Active Substance: ADALIMUMAB
     Indication: PSORIATIC ARTHROPATHY
     Route: 065
     Dates: start: 201409
  9. BETAMETHASONE DIPROPIONATE. [Concomitant]
     Active Substance: BETAMETHASONE DIPROPIONATE
     Indication: PSORIASIS
     Dosage: TO SCALP
     Route: 061

REACTIONS (12)
  - Arthritis [Recovered/Resolved]
  - Arthritis infective [Recovered/Resolved]
  - Joint warmth [Recovered/Resolved]
  - Joint effusion [Recovered/Resolved]
  - Chills [Recovered/Resolved]
  - Actinic keratosis [Recovered/Resolved]
  - Hypoaesthesia [Recovered/Resolved]
  - Skin cancer [Unknown]
  - Contusion [Recovered/Resolved]
  - Injection site pain [Not Recovered/Not Resolved]
  - Vascular injury [Recovered/Resolved]
  - Injection site bruising [Recovered/Resolved]

NARRATIVE: CASE EVENT DATE: 201410
